FAERS Safety Report 7989310-9 (Version None)
Quarter: 2011Q4

REPORT INFORMATION
  Report Type: 
  Country: None (occurrence: None)
  Receive Date: 20111219
  Receipt Date: 20111208
  Transmission Date: 20120403
  Serious: Yes (Hospitalization)
  Sender: FDA-Public Use
  Company Number: US-US-EMD SERONO, INC.-7099216

PATIENT
  Sex: Female
  Weight: 58 kg

DRUGS (5)
  1. REBIF [Suspect]
     Route: 058
     Dates: start: 20111024, end: 20111101
  2. VICODIN [Concomitant]
     Indication: BACK PAIN
  3. REBIF [Suspect]
     Indication: PRODUCT USED FOR UNKNOWN INDICATION
     Route: 058
     Dates: start: 20110401, end: 20110601
  4. VICODIN [Concomitant]
     Indication: PAIN IN EXTREMITY
  5. PREDNISONE [Concomitant]
     Indication: PRODUCT USED FOR UNKNOWN INDICATION

REACTIONS (2)
  - BLOOD COUNT ABNORMAL [None]
  - PEPTIC ULCER [None]
